FAERS Safety Report 9150161 (Version 1)
Quarter: 2013Q1

REPORT INFORMATION
  Report Type: Spontaneous
  Country: DK (occurrence: None)
  Receive Date: 20130129
  Receipt Date: 20130129
  Transmission Date: 20140127
  Serious: Yes (Hospitalization)
  Sender: FDA-Public Use
  Company Number: 2013MA000617

PATIENT
  Age: 87 Year
  Sex: Female

DRUGS (1)
  1. CITALOPRAM HYDROBROMIDE TABLETS, 40 MG (PUREPAC) (CITALOPRAM HYDROBROMIDE) [Suspect]
     Route: 048
     Dates: start: 20130101

REACTIONS (4)
  - Platelet aggregation inhibition [None]
  - Haematemesis [None]
  - Fall [None]
  - Hip arthroplasty [None]
